FAERS Safety Report 18158055 (Version 1)
Quarter: 2020Q3

REPORT INFORMATION
  Report Type: Spontaneous
  Country: US (occurrence: US)
  Receive Date: 20200817
  Receipt Date: 20200817
  Transmission Date: 20201103
  Serious: No
  Sender: FDA-Public Use
  Company Number: US-MEDEXUS PHARMA, INC.-2020MED00116

PATIENT
  Age: 47 Year
  Sex: Female
  Weight: 68.03 kg

DRUGS (10)
  1. RASUVO [Suspect]
     Active Substance: METHOTREXATE SODIUM
     Dosage: 22.5 MG, 1X/WEEK (NORMALLY ON THURSDAYS) INJECTED IN HER THIGH
     Dates: start: 20200509
  2. FOLIC ACID. [Concomitant]
     Active Substance: FOLIC ACID
  3. HYDROCORTISONE. [Concomitant]
     Active Substance: HYDROCORTISONE
     Dosage: 15 UNK
  4. METOPROLOL TARTRATE. [Concomitant]
     Active Substance: METOPROLOL TARTRATE
     Dosage: 100 MG, 1X/DAY
  5. MELOXICAM. [Concomitant]
     Active Substance: MELOXICAM
     Dosage: 15 MG
  6. KINERET [Concomitant]
     Active Substance: ANAKINRA
  7. AZATHIOPRINE. [Concomitant]
     Active Substance: AZATHIOPRINE
     Dosage: 150 MG, 1X/DAY
  8. PREGABALIN. [Concomitant]
     Active Substance: PREGABALIN
     Dosage: 450 MG
  9. RASUVO [Suspect]
     Active Substance: METHOTREXATE SODIUM
     Indication: RHEUMATOID ARTHRITIS
     Dosage: 22.5 MG, 1X/WEEK ON THURSDAYS INJECTED IN HER THIGH
     Dates: start: 2012, end: 202004
  10. OMEPRAZOLE. [Concomitant]
     Active Substance: OMEPRAZOLE
     Dosage: 80 MG, 1X/DAY

REACTIONS (9)
  - Device malfunction [Recovered/Resolved]
  - Nausea [Not Recovered/Not Resolved]
  - Product dose omission issue [Recovered/Resolved]
  - Migraine [Not Recovered/Not Resolved]
  - Sinus congestion [Not Recovered/Not Resolved]
  - Accidental exposure to product [Recovered/Resolved]
  - Malaise [Not Recovered/Not Resolved]
  - Incorrect dose administered [Recovered/Resolved]
  - Fatigue [Not Recovered/Not Resolved]

NARRATIVE: CASE EVENT DATE: 2012
